FAERS Safety Report 23501025 (Version 2)
Quarter: 2024Q2

REPORT INFORMATION
  Report Type: Report from Study
  Country: AU (occurrence: None)
  Receive Date: 20240208
  Receipt Date: 20240508
  Transmission Date: 20240716
  Serious: Yes (Hospitalization, Other)
  Sender: FDA-Public Use
  Company Number: 2024A025898

PATIENT
  Sex: Female

DRUGS (1)
  1. FASENRA [Suspect]
     Active Substance: BENRALIZUMAB
     Dosage: 30MG/ML EVERY EIGHT WEEKS
     Route: 058

REACTIONS (2)
  - Throat tightness [Unknown]
  - Hypersensitivity [Unknown]
